FAERS Safety Report 24607354 (Version 1)
Quarter: 2024Q4

REPORT INFORMATION
  Report Type: Spontaneous
  Country: SG (occurrence: SG)
  Receive Date: 20241112
  Receipt Date: 20241112
  Transmission Date: 20250114
  Serious: Yes (Hospitalization)
  Sender: ACCORD
  Company Number: SG-MLMSERVICE-20241024-PI237980-00255-5

PATIENT
  Age: 63 Year
  Sex: Female

DRUGS (2)
  1. PACLITAXEL [Suspect]
     Active Substance: PACLITAXEL
     Indication: Invasive breast carcinoma
     Dosage: 12 CYCLES OF WEEKLY PACLITAXEL
     Dates: end: 2020
  2. PACLITAXEL [Suspect]
     Active Substance: PACLITAXEL
     Indication: Hormone receptor positive breast cancer
     Dosage: 12 CYCLES OF WEEKLY PACLITAXEL
     Dates: end: 2020

REACTIONS (4)
  - Pneumonitis [Recovering/Resolving]
  - Staphylococcal infection [Recovering/Resolving]
  - Device related infection [Recovering/Resolving]
  - Haematological infection [Recovering/Resolving]

NARRATIVE: CASE EVENT DATE: 20200101
